FAERS Safety Report 17078040 (Version 11)
Quarter: 2022Q1

REPORT INFORMATION
  Report Type: Spontaneous
  Country: US (occurrence: US)
  Receive Date: 20191126
  Receipt Date: 20220302
  Transmission Date: 20220423
  Serious: Yes (Death, Life-Threatening, Hospitalization)
  Sender: FDA-Public Use
  Company Number: US-CELGENE-USA-20191109433

PATIENT
  Age: 76 Year
  Sex: Male

DRUGS (15)
  1. AZACITIDINE [Suspect]
     Active Substance: AZACITIDINE
     Indication: Acute myeloid leukaemia
     Dosage: 75 MILLIGRAM/SQ. METER
     Route: 041
     Dates: start: 20190826, end: 20191008
  2. VENETOCLAX [Suspect]
     Active Substance: VENETOCLAX
     Indication: Acute myeloid leukaemia
     Dosage: 100 MILLIGRAM
     Route: 048
     Dates: start: 20190826, end: 20190826
  3. VENETOCLAX [Suspect]
     Active Substance: VENETOCLAX
     Dosage: 200 MILLIGRAM
     Route: 048
     Dates: start: 20190827, end: 20190827
  4. VENETOCLAX [Suspect]
     Active Substance: VENETOCLAX
     Dosage: 400 MILLIGRAM
     Route: 048
     Dates: start: 20190828, end: 20191029
  5. ALLOPURINOL [Concomitant]
     Active Substance: ALLOPURINOL
     Indication: Prophylaxis
     Dosage: 300 MILLIGRAM
     Route: 065
     Dates: start: 20190826, end: 20191030
  6. SODIUM CHLORIDE [Concomitant]
     Active Substance: SODIUM CHLORIDE
     Indication: Prophylaxis
     Dosage: 1000 MILLILITER
     Route: 041
     Dates: start: 20190826, end: 20190829
  7. SODIUM CHLORIDE [Concomitant]
     Active Substance: SODIUM CHLORIDE
     Indication: Hypotension
     Dosage: 0.9 PERCENT
     Route: 041
     Dates: start: 20190904, end: 20190904
  8. SODIUM CHLORIDE [Concomitant]
     Active Substance: SODIUM CHLORIDE
     Dosage: 1000 MILLILITER
     Route: 041
     Dates: start: 20191014, end: 20191014
  9. SODIUM CHLORIDE [Concomitant]
     Active Substance: SODIUM CHLORIDE
     Dosage: 1000 MILLILITER
     Route: 041
     Dates: start: 20191018, end: 20191018
  10. SODIUM CHLORIDE [Concomitant]
     Active Substance: SODIUM CHLORIDE
     Dosage: 1000 MILLILITER
     Route: 041
     Dates: start: 20191018, end: 20191018
  11. ACYCLOVIR [Concomitant]
     Active Substance: ACYCLOVIR
     Indication: Antiviral prophylaxis
     Dosage: 1600 MILLIGRAM
     Route: 048
     Dates: start: 20190812, end: 20191121
  12. ACYCLOVIR [Concomitant]
     Active Substance: ACYCLOVIR
     Dosage: 1600 MILLIGRAM
     Route: 048
     Dates: start: 20191030, end: 20191101
  13. LEVAQUIN [Concomitant]
     Active Substance: LEVOFLOXACIN
     Indication: Infection prophylaxis
     Dosage: 500 MILLIGRAM
     Route: 048
     Dates: start: 20190815, end: 20191117
  14. VORICONAZOLE [Concomitant]
     Active Substance: VORICONAZOLE
     Indication: Aspergillus infection
     Dosage: 400 MILLIGRAM
     Route: 048
     Dates: start: 20191109
  15. VORICONAZOLE [Concomitant]
     Active Substance: VORICONAZOLE
     Dosage: 400 MILLIGRAM
     Route: 048
     Dates: start: 20191108, end: 20191108

REACTIONS (2)
  - Sepsis [Fatal]
  - Sepsis [Recovered/Resolved]

NARRATIVE: CASE EVENT DATE: 20191117
